FAERS Safety Report 25131468 (Version 1)
Quarter: 2025Q1

REPORT INFORMATION
  Report Type: Report from Study
  Country: US (occurrence: US)
  Receive Date: 20250327
  Receipt Date: 20250327
  Transmission Date: 20250409
  Serious: Yes (Other)
  Sender: ABBVIE
  Company Number: US-ABBVIE-6188309

PATIENT
  Sex: Female

DRUGS (1)
  1. SKYRIZI [Suspect]
     Active Substance: RISANKIZUMAB-RZAA
     Indication: Product used for unknown indication
     Route: 058

REACTIONS (11)
  - Hysterectomy [Unknown]
  - Peripheral swelling [Unknown]
  - Neuropathy peripheral [Unknown]
  - Impatience [Unknown]
  - Nail disorder [Unknown]
  - Skin disorder [Unknown]
  - Gait disturbance [Unknown]
  - Unevaluable event [Unknown]
  - Walking aid user [Unknown]
  - Hypoaesthesia [Unknown]
  - Condition aggravated [Unknown]
